FAERS Safety Report 8989263 (Version 2)
Quarter: 2013Q1

REPORT INFORMATION
  Report Type: Report from Study
  Country: NL (occurrence: NL)
  Receive Date: 20121227
  Receipt Date: 20130114
  Transmission Date: 20140127
  Serious: Yes (Other)
  Sender: FDA-Public Use
  Company Number: NL-CELGENEUS-114-21880-12122014

PATIENT
  Age: 76 Year
  Sex: Male
  Weight: 75 kg

DRUGS (7)
  1. REVLIMID [Suspect]
     Indication: PLASMA CELL MYELOMA
     Route: 048
     Dates: start: 20110705, end: 20110712
  2. REVLIMID [Suspect]
     Route: 048
     Dates: end: 20110809
  3. REVLIMID [Suspect]
     Route: 048
     Dates: start: 20101123
  4. MELPHALAN [Suspect]
     Indication: PLASMA CELL MYELOMA
     Route: 048
     Dates: start: 20110705, end: 20110712
  5. MELPHALAN [Suspect]
     Route: 065
     Dates: end: 20120809
  6. PREDNISONE [Suspect]
     Indication: PLASMA CELL MYELOMA
     Route: 048
     Dates: start: 20110705, end: 20110712
  7. PREDNISONE [Suspect]
     Route: 065
     Dates: end: 20120809

REACTIONS (3)
  - Squamous cell carcinoma of skin [Recovered/Resolved]
  - Squamous cell carcinoma of skin [Recovered/Resolved]
  - Basal cell carcinoma [Recovered/Resolved]
